FAERS Safety Report 24726219 (Version 1)
Quarter: 2024Q4

REPORT INFORMATION
  Report Type: Spontaneous
  Country: FR (occurrence: FR)
  Receive Date: 20241212
  Receipt Date: 20241212
  Transmission Date: 20250115
  Serious: Yes (Hospitalization)
  Sender: TEVA
  Company Number: None

PATIENT
  Age: 66 Year
  Sex: Male
  Weight: 89 kg

DRUGS (18)
  1. PEMETREXED [Suspect]
     Active Substance: PEMETREXED
     Indication: Lung adenocarcinoma
     Dosage: 500 MG/M?
     Route: 042
     Dates: start: 20240822, end: 20240822
  2. PEMETREXED [Suspect]
     Active Substance: PEMETREXED
     Indication: Lung adenocarcinoma
     Dosage: 500 MG/M?
     Route: 042
     Dates: start: 20240801, end: 20240801
  3. PEMETREXED [Suspect]
     Active Substance: PEMETREXED
     Indication: Lung adenocarcinoma
     Dosage: 500 MG/M? AFTER INTERCURE
     Route: 042
     Dates: start: 20241017, end: 20241017
  4. PEMETREXED [Suspect]
     Active Substance: PEMETREXED
     Indication: Lung adenocarcinoma
     Dosage: 500 MG/M?
     Route: 042
     Dates: start: 20240711, end: 20240711
  5. LOVENOX [Concomitant]
     Active Substance: ENOXAPARIN SODIUM
     Indication: Thrombosis prophylaxis
     Dosage: 0-0-1, ANTI-XA/0.4 ML, SOLUTION FOR INJECTION IN AMPOULE
     Route: 058
     Dates: start: 20241103
  6. NEFOPAM HYDROCHLORIDE [Concomitant]
     Active Substance: NEFOPAM HYDROCHLORIDE
     Indication: Analgesic intervention supportive therapy
     Dosage: IF NECESSARY, MAX 80MG/D
     Route: 048
     Dates: start: 20241102
  7. CEFTRIAXONE [Concomitant]
     Active Substance: CEFTRIAXONE
     Indication: Febrile neutropenia
     Dosage: 1-0-0, CEFTRIAXONE BASE
     Route: 042
     Dates: start: 20241104, end: 20241109
  8. PIPERACILLIN SODIUM\TAZOBACTAM SODIUM [Concomitant]
     Active Substance: PIPERACILLIN SODIUM\TAZOBACTAM SODIUM
     Indication: Febrile neutropenia
     Dosage: 1-1-1-1
     Route: 042
     Dates: start: 20241102, end: 20241103
  9. ONDANSETRON [Concomitant]
     Active Substance: ONDANSETRON
     Indication: Chemotherapy side effect prophylaxis
     Dosage: TIME INTERVAL: CYCLICAL: AS PREMEDICATION FOR CHEMOTHERAPY
     Route: 048
  10. POLYETHYLENE GLYCOL 4000 [Concomitant]
     Active Substance: POLYETHYLENE GLYCOL 4000
     Indication: Constipation
     Dosage: IF NECESSARY
     Route: 048
     Dates: start: 20241102
  11. ACETAMINOPHEN [Concomitant]
     Active Substance: ACETAMINOPHEN
     Indication: Product used for unknown indication
     Dosage: SELF-MEDICATION
     Route: 048
     Dates: start: 20241102, end: 20241102
  12. CARBOPLATIN [Suspect]
     Active Substance: CARBOPLATIN
     Indication: Lung adenocarcinoma
     Dosage: AUC5 C1 APR?S INTERCURE
     Route: 042
     Dates: start: 20241017, end: 20241017
  13. CARBOPLATIN [Suspect]
     Active Substance: CARBOPLATIN
     Indication: Lung adenocarcinoma
     Dosage: C2J1 AUC5
     Route: 042
     Dates: start: 20240801, end: 20240801
  14. CARBOPLATIN [Suspect]
     Active Substance: CARBOPLATIN
     Indication: Lung adenocarcinoma
     Dosage: C1J1 AUC5
     Route: 042
     Dates: start: 20240711, end: 20240711
  15. CARBOPLATIN [Suspect]
     Active Substance: CARBOPLATIN
     Indication: Lung adenocarcinoma
     Dosage: C3J1 AUC5
     Route: 042
     Dates: start: 20240822, end: 20240822
  16. CALCIUM PHOSPHATE, DIBASIC, ANHYDROUS\MAGNESIUM GLYCEROPHOSPHATE\PHOSP [Concomitant]
     Active Substance: CALCIUM PHOSPHATE, DIBASIC, ANHYDROUS\MAGNESIUM GLYCEROPHOSPHATE\PHOSPHORIC ACID\SODIUM PHOSPHATE, D
     Indication: Hypophosphataemia
     Dosage: 60 GOUTTES 1-0-1, PHOSPHONEUROS, ORAL SOLUTION IN DROPS
     Route: 048
     Dates: start: 20241102
  17. FOLIC ACID [Concomitant]
     Active Substance: FOLIC ACID
     Indication: Product used for unknown indication
     Route: 048
     Dates: start: 20240912
  18. PREDNISONE [Concomitant]
     Active Substance: PREDNISONE
     Indication: Chemotherapy side effect prophylaxis
     Dosage: TIME INTERVAL: CYCLICAL: THE DAY BEFORE AND THE DAY OF THE TREATMENT WITH PEMETREXED
     Route: 048
     Dates: start: 20240912

REACTIONS (1)
  - Hepatic cytolysis [Recovering/Resolving]

NARRATIVE: CASE EVENT DATE: 20241102
